FAERS Safety Report 10380656 (Version 1)
Quarter: 2014Q3

REPORT INFORMATION
  Report Type: Report from Study
  Country: MX (occurrence: MX)
  Receive Date: 20140813
  Receipt Date: 20140813
  Transmission Date: 20150326
  Serious: Yes (Other)
  Sender: FDA-Public Use
  Company Number: PHHY2014MX095330

PATIENT
  Age: 71 Year
  Sex: Female

DRUGS (4)
  1. ONBREZ [Suspect]
     Active Substance: INDACATEROL
     Indication: LUNG DISORDER
     Dosage: 1 DF, DAILY (CAPSULE)
     Route: 055
  2. VITAMIN C + E [Concomitant]
     Dosage: UNK UKN, DAILY
  3. ONBREZ [Suspect]
     Active Substance: INDACATEROL
     Indication: OFF LABEL USE
  4. SERETIDE [Concomitant]
     Active Substance: FLUTICASONE FUROATE\SALMETEROL XINAFOATE
     Dosage: 1 DF, UNK

REACTIONS (1)
  - Deafness [Not Recovered/Not Resolved]
